FAERS Safety Report 17678795 (Version 1)
Quarter: 2020Q2

REPORT INFORMATION
  Report Type: Spontaneous
  Country: BR (occurrence: BR)
  Receive Date: 20200417
  Receipt Date: 20200417
  Transmission Date: 20200714
  Serious: Yes (Other)
  Sender: FDA-Public Use
  Company Number: BR-EMD SERONO-9156964

PATIENT
  Age: 70 Year
  Sex: Male

DRUGS (5)
  1. GLIFAGE [Suspect]
     Active Substance: METFORMIN HYDROCHLORIDE
     Indication: DIABETES MELLITUS
  2. MELOXICAM. [Concomitant]
     Active Substance: MELOXICAM
     Indication: OSTEOARTHRITIS
  3. THIOCTACID [Suspect]
     Active Substance: .ALPHA.-LIPOIC ACID
     Dosage: THERAPY START DATE: 27 JAN 2020
     Route: 048
     Dates: end: 2020
  4. THIOCTACID [Suspect]
     Active Substance: .ALPHA.-LIPOIC ACID
     Indication: DIABETIC NEUROPATHY
     Dosage: THERAPY START DATE: DEC 2019
     Route: 048
     Dates: end: 202001
  5. MELOXICAM. [Concomitant]
     Active Substance: MELOXICAM
     Indication: ARTHRITIS

REACTIONS (1)
  - Laryngeal dysplasia [Unknown]

NARRATIVE: CASE EVENT DATE: 201810
